FAERS Safety Report 18195688 (Version 2)
Quarter: 2020Q4

REPORT INFORMATION
  Report Type: Spontaneous
  Country: IT (occurrence: IT)
  Receive Date: 20200826
  Receipt Date: 20201029
  Transmission Date: 20210113
  Serious: Yes (Hospitalization, Other)
  Sender: FDA-Public Use
  Company Number: IT-SUN PHARMACEUTICAL INDUSTRIES LTD-2020RR-258822

PATIENT
  Age: 45 Year
  Sex: Female

DRUGS (8)
  1. GABAPENTIN. [Suspect]
     Active Substance: GABAPENTIN
     Indication: PERSONALITY DISORDER
     Dosage: 300 MILLIGRAM, DAILY, UNTIL 2020
     Route: 048
  2. VATRAN 2 MG COMPRESSE [Suspect]
     Active Substance: DIAZEPAM
     Indication: ANXIETY
     Dosage: 6 MILLIGRAM, DAIL, UNTIL 2020
     Route: 048
  3. NAEMIS COMPRESSE [Suspect]
     Active Substance: ESTRADIOL\NOMEGESTROL ACETATE
     Indication: ORAL CONTRACEPTION
     Dosage: 1 DOSAGE FORM, DAILY
     Route: 048
  4. CITALOPRAM [Suspect]
     Active Substance: CITALOPRAM HYDROBROMIDE
     Indication: DEPRESSION
     Dosage: 40 MILLIGRAM, DAILY
     Route: 048
  5. OLANZAPINE. [Suspect]
     Active Substance: OLANZAPINE
     Indication: PSYCHOTIC DISORDER
     Dosage: 7.5 MILLIGRAM, DAILY
     Route: 048
  6. CARBOLITHIUM 300 MG CAPSULE RIGIDE [Suspect]
     Active Substance: LITHIUM CARBONATE
     Indication: BIPOLAR II DISORDER
     Dosage: 900 MILLIGRAM, DAILY, UNTIL 2020
     Route: 048
  7. DEPAKIN (SODIUM VALPROATE/VALPROIC ACID) [Suspect]
     Active Substance: VALPROATE SODIUM
     Indication: BIPOLAR II DISORDER
     Dosage: 750 MILLIGRAM, DAILY, UNTIL 2020
     Route: 048
  8. LAMICTAL [Suspect]
     Active Substance: LAMOTRIGINE
     Indication: BIPOLAR II DISORDER
     Dosage: 150 MILLIGRAM, DAILY
     Route: 048

REACTIONS (4)
  - Drug abuse [Recovering/Resolving]
  - Speech disorder [Recovering/Resolving]
  - Hypokinesia [Recovering/Resolving]
  - Bradyphrenia [Recovering/Resolving]

NARRATIVE: CASE EVENT DATE: 20200708
